FAERS Safety Report 4576593-0 (Version None)
Quarter: 2005Q1

REPORT INFORMATION
  Report Type: 
  Country: None (occurrence: None)
  Receive Date: 20050119
  Receipt Date: 20040920
  Transmission Date: 20050727
  Serious: Yes (Hospitalization)
  Sender: FDA-Public Use
  Company Number: A03200403216

PATIENT
  Age: 85 Year
  Sex: Female

DRUGS (6)
  1. PLAVIX [Suspect]
     Indication: STENT PLACEMENT
     Dosage: ORAL
     Route: 048
     Dates: start: 20031001
  2. ASPIRIN [Suspect]
     Indication: STENT PLACEMENT
     Dosage: ORAL
     Route: 048
     Dates: start: 20031001
  3. CALCIUM CARBONATE [Concomitant]
  4. CALCIUM CARBONATE [Concomitant]
  5. VITAMINS NOS [Concomitant]
  6. ACETAMINOPHEN [Concomitant]

REACTIONS (8)
  - DEPRESSION [None]
  - FREQUENT BOWEL MOVEMENTS [None]
  - HYPERCHOLESTEROLAEMIA [None]
  - HYPERSOMNIA [None]
  - HYPERTENSION [None]
  - RECTAL HAEMORRHAGE [None]
  - SKIN DISCOLOURATION [None]
  - WEIGHT DECREASED [None]
